FAERS Safety Report 9645503 (Version 2)
Quarter: 2013Q4

REPORT INFORMATION
  Report Type: Spontaneous
  Country: IN (occurrence: IN)
  Receive Date: 20131025
  Receipt Date: 20131217
  Transmission Date: 20140711
  Serious: Yes (Congenital Anomaly)
  Sender: FDA-Public Use
  Company Number: IN-ABBVIE-13P-078-1159385-00

PATIENT
  Age: 18 Hour
  Sex: Female
  Weight: 3.8 kg

DRUGS (1)
  1. VALPROIC ACID [Suspect]
     Indication: MATERNAL EXPOSURE TIMING UNSPECIFIED
     Route: 064

REACTIONS (31)
  - Vascular anomaly [Unknown]
  - Foetal anticonvulsant syndrome [Unknown]
  - Respiratory distress [Unknown]
  - Unevaluable investigation [Unknown]
  - Cyanosis central [Unknown]
  - Oxygen saturation decreased [Unknown]
  - Cardiac failure [Unknown]
  - Cardiomegaly [Unknown]
  - Pulmonary malformation [Unknown]
  - QRS axis abnormal [Unknown]
  - Right ventricular hypertrophy [Unknown]
  - Electrocardiogram T wave inversion [Unknown]
  - Supraventricular extrasystoles [Unknown]
  - Atrial septal defect [Unknown]
  - Atrial septal defect [Unknown]
  - Atrial septal defect [Unknown]
  - Vascular anomaly [Unknown]
  - Hepatomegaly [Unknown]
  - Low set ears [Unknown]
  - Congenital nose malformation [Unknown]
  - Dysmorphism [Unknown]
  - Congenital oral malformation [Unknown]
  - Neck deformity [Unknown]
  - Microphthalmos [Unknown]
  - High arched palate [Unknown]
  - Congenital hand malformation [Unknown]
  - Congenital foot malformation [Unknown]
  - Congenital joint malformation [Unknown]
  - Congenital cutis laxa [Unknown]
  - Anal skin tags [Unknown]
  - Foetal exposure during pregnancy [Unknown]
